FAERS Safety Report 9820014 (Version 1)
Quarter: 2013Q3

REPORT INFORMATION
  Report Type: Spontaneous
  Country: US (occurrence: None)
  Receive Date: 20130924
  Receipt Date: 20130924
  Transmission Date: 20140515
  Serious: Yes (Other)
  Sender: FDA-Public Use
  Company Number: 2013000246

PATIENT
  Age: 50 Year
  Sex: Female
  Weight: 49.9 kg

DRUGS (6)
  1. OSPHENA [Suspect]
     Indication: VULVOVAGINAL DRYNESS
     Route: 048
     Dates: start: 20130809, end: 20130813
  2. OSPHENA [Suspect]
     Indication: OFF LABEL USE
     Route: 048
     Dates: start: 20130809, end: 20130813
  3. PREMARIN (ESTROGENS CONJUGATED) [Concomitant]
  4. FISH OIL (FISH OIL) [Concomitant]
  5. VITAMIN D (COLECALCIFEROL) [Concomitant]
  6. FLAXSEED OIL (LINUM UNSITATISSIMUM SEED OIL) [Concomitant]

REACTIONS (4)
  - Asthenia [None]
  - Chest discomfort [None]
  - Fatigue [None]
  - Off label use [None]
